FAERS Safety Report 4534635-2 (Version None)
Quarter: 2004Q4

REPORT INFORMATION
  Report Type: 
  Country: None (occurrence: None)
  Receive Date: 20041222
  Receipt Date: 20041211
  Transmission Date: 20050328
  Serious: Yes (Hospitalization)
  Sender: FDA-Public Use
  Company Number: JP-JNJFOC-20041001020

PATIENT
  Sex: Male
  Weight: 69 kg

DRUGS (9)
  1. REMICADE [Suspect]
     Route: 042
  2. REMICADE [Suspect]
     Route: 042
  3. REMICADE [Suspect]
     Route: 042
  4. REMICADE [Suspect]
     Indication: RHEUMATOID ARTHRITIS
     Route: 042
  5. RHEUMATREX [Concomitant]
  6. RHEUMATREX [Concomitant]
     Indication: RHEUMATOID ARTHRITIS
  7. LEDACORT [Concomitant]
     Indication: RHEUMATOID ARTHRITIS
     Route: 049
  8. PREDNISOLONE [Concomitant]
     Indication: RHEUMATOID ARTHRITIS
     Route: 049
  9. LOXONIN [Concomitant]
     Indication: RHEUMATOID ARTHRITIS
     Route: 049

REACTIONS (8)
  - BACTERIAL INFECTION [None]
  - CSF TEST ABNORMAL [None]
  - DEMYELINATION [None]
  - DIPLOPIA [None]
  - DIZZINESS [None]
  - SURGERY [None]
  - THERAPEUTIC RESPONSE DECREASED [None]
  - VISUAL ACUITY REDUCED [None]
